FAERS Safety Report 6312503-3 (Version None)
Quarter: 2009Q3

REPORT INFORMATION
  Report Type: 
  Country: None (occurrence: None)
  Receive Date: 20090813
  Receipt Date: 20090804
  Transmission Date: 20100115
  Serious: Yes (Hospitalization)
  Sender: FDA-Public Use
  Company Number: USA/USA/09/0000564

PATIENT
  Age: 92 Year
  Sex: Female
  Weight: 43.0917 kg

DRUGS (8)
  1. FEXOFENADINE HYDROCHLORIDE [Suspect]
     Indication: MULTIPLE ALLERGIES
     Dosage: 180 MG, ONE TABLET DAILY, PER
     Dates: start: 20080101, end: 20090727
  2. ARICEPT [Concomitant]
  3. NAMENDA [Concomitant]
  4. LEVOTHYROXINE SODIUM [Concomitant]
  5. LIPITOR [Concomitant]
  6. VITAMIN B12 INJECTION (CYANOCOBALAMIN) [Concomitant]
  7. CALTRATE WITH VITAMIN D (LEKOVIT CA) [Concomitant]
  8. GERITOL COMPLETE [Concomitant]

REACTIONS (1)
  - URINARY TRACT INFECTION [None]
